FAERS Safety Report 7266294-2 (Version None)
Quarter: 2011Q1

REPORT INFORMATION
  Report Type: 
  Country: None (occurrence: None)
  Receive Date: 20110131
  Receipt Date: 20110128
  Transmission Date: 20110831
  Serious: Yes (Other)
  Sender: FDA-Public Use
  Company Number: US-PFIZER INC-2011020976

PATIENT
  Sex: Male
  Weight: 86 kg

DRUGS (2)
  1. VFEND [Suspect]
     Indication: BRONCHOPULMONARY ASPERGILLOSIS
     Dosage: 200 MG, THREE TO FOUR TIMES A DAY
     Route: 048
     Dates: start: 20100601
  2. METOPROLOL TARTRATE [Concomitant]
     Indication: MYOCARDIAL INFARCTION
     Dosage: 25 MG, 1X/DAY
     Route: 048

REACTIONS (6)
  - OXYGEN SATURATION ABNORMAL [None]
  - DYSPNOEA [None]
  - EJECTION FRACTION ABNORMAL [None]
  - MITRAL VALVE PROLAPSE [None]
  - CARDIOMYOPATHY [None]
  - OEDEMA PERIPHERAL [None]
